FAERS Safety Report 14860926 (Version 1)
Quarter: 2018Q2

REPORT INFORMATION
  Report Type: Report from Study
  Country: ES (occurrence: ES)
  Receive Date: 20180508
  Receipt Date: 20180508
  Transmission Date: 20180711
  Serious: Yes (Hospitalization)
  Sender: FDA-Public Use
  Company Number: ES-ACCORD-066579

PATIENT
  Age: 36 Year
  Sex: Female
  Weight: 53 kg

DRUGS (6)
  1. AMINO ACIDS NOS [Concomitant]
     Active Substance: AMINO ACIDS
     Indication: NEOPLASM MALIGNANT
     Dates: start: 20150923
  2. TRASTUZUMAB/EMTANSINE [Suspect]
     Active Substance: ADO-TRASTUZUMAB EMTANSINE
     Indication: HER-2 POSITIVE BREAST CANCER
     Dosage: DOSE: 1 (UNIT UNSPECIFIED)?ALSO RECEIVED FROM FEB-2017 TO APR-2017
     Route: 042
     Dates: start: 201604, end: 201611
  3. DOCETAXEL. [Suspect]
     Active Substance: DOCETAXEL
     Indication: HER-2 POSITIVE BREAST CANCER
     Dosage: DOSE: 1 (UNIT UNSPECIFIED)?ALSO RECEIVED AT DOSE OF 55 MG UPTO 01-SEP-2015
     Route: 042
     Dates: start: 20150521
  4. TRASTUZUMAB. [Suspect]
     Active Substance: TRASTUZUMAB
     Indication: HER-2 POSITIVE BREAST CANCER
     Dosage: DOSE: 1 (UNIT UNKNOWN)?ALSO RECEIVED DOSE: 600 MG/5ML UPTO 11-MAR-2016;WEEKS AT EXPOSURE: 42 WEEKS
     Route: 058
     Dates: start: 20150521, end: 20160311
  5. PERTUZUMAB. [Suspect]
     Active Substance: PERTUZUMAB
     Indication: HER-2 POSITIVE BREAST CANCER
     Dosage: LOADING DOSE.?ALSO RECEIVED AT DOSE OF 420MG/3WEEK UPTO 11-MAR-2016 (MAINTAINANCE DOSE)
     Route: 042
     Dates: start: 20150521
  6. TAMOXIFEN [Concomitant]
     Active Substance: TAMOXIFEN
     Indication: NEOPLASM MALIGNANT
     Dates: start: 20150923

REACTIONS (3)
  - Maternal exposure during pregnancy [Unknown]
  - Pre-eclampsia [Unknown]
  - Premature separation of placenta [Unknown]

NARRATIVE: CASE EVENT DATE: 201607
